FAERS Safety Report 16684935 (Version 1)
Quarter: 2019Q3

REPORT INFORMATION
  Report Type: Spontaneous
  Country: US (occurrence: US)
  Receive Date: 20190808
  Receipt Date: 20190808
  Transmission Date: 20191004
  Serious: Yes (Hospitalization)
  Sender: FDA-Public Use
  Company Number: US-SHIRE-US201924036

PATIENT
  Sex: Female
  Weight: 67.12 kg

DRUGS (1)
  1. GATTEX [Suspect]
     Active Substance: TEDUGLUTIDE\WATER
     Indication: SHORT-BOWEL SYNDROME
     Dosage: 0.336 MILLILITER, 1X/DAY:QD
     Route: 058

REACTIONS (2)
  - Dehydration [Recovered/Resolved]
  - Urinary tract infection [Recovered/Resolved]
